FAERS Safety Report 24318641 (Version 2)
Quarter: 2024Q3

REPORT INFORMATION
  Report Type: Spontaneous
  Country: US (occurrence: US)
  Receive Date: 20240913
  Receipt Date: 20240923
  Transmission Date: 20241016
  Serious: Yes (Hospitalization)
  Sender: PHARMING GROUP
  Company Number: US-PHARMING-PHAUS2024000792

PATIENT

DRUGS (3)
  1. RUCONEST [Suspect]
     Active Substance: CONESTAT ALFA
     Indication: Hereditary angioedema
     Dosage: 3000 IU, EVERY WEEK
     Route: 042
     Dates: start: 201809
  2. RUCONEST [Suspect]
     Active Substance: CONESTAT ALFA
     Dosage: 3000 IU, EVERY WEEK
     Route: 042
     Dates: start: 201809
  3. HEPARIN [Concomitant]
     Active Substance: HEPARIN SODIUM
     Indication: Product used for unknown indication

REACTIONS (2)
  - Blood potassium decreased [Unknown]
  - Intentional product use issue [Unknown]
